FAERS Safety Report 11196020 (Version 1)
Quarter: 2015Q2

REPORT INFORMATION
  Report Type: Spontaneous
  Country: CA (occurrence: CA)
  Receive Date: 20150617
  Receipt Date: 20150617
  Transmission Date: 20150821
  Serious: Yes (Other)
  Sender: FDA-Public Use
  Company Number: CA-TEVA-571405ACC

PATIENT
  Age: 34 Year
  Sex: Female
  Weight: 76.27 kg

DRUGS (3)
  1. TEVA-QUETIAPINE XR [Suspect]
     Active Substance: QUETIAPINE
     Indication: BIPOLAR DISORDER
     Dosage: 1 DOSAGE FORMS DAILY;
     Route: 065
  2. LAMOTRIGINE. [Concomitant]
     Active Substance: LAMOTRIGINE
     Dosage: UNKNOWN FORM STRENGTH
     Route: 065
  3. LITHIUM. [Concomitant]
     Active Substance: LITHIUM
     Dosage: UNKNOWN FORM STRENGTH
     Route: 065

REACTIONS (6)
  - Tearfulness [Not Recovered/Not Resolved]
  - Drug ineffective [Not Recovered/Not Resolved]
  - Irritability [Not Recovered/Not Resolved]
  - Product substitution issue [Not Recovered/Not Resolved]
  - Insomnia [Not Recovered/Not Resolved]
  - Bipolar disorder [Not Recovered/Not Resolved]
